FAERS Safety Report 8488583-6 (Version None)
Quarter: 2012Q2

REPORT INFORMATION
  Report Type: 
  Country: None (occurrence: None)
  Receive Date: 20120626
  Receipt Date: 20120611
  Transmission Date: 20120825
  Serious: Yes (Hospitalization)
  Sender: FDA-Public Use
  Company Number: 2011MA007914

PATIENT
  Sex: Female
  Weight: 115.2136 kg

DRUGS (16)
  1. VITAMIN D [Concomitant]
  2. HYDROCODONE BITARTRATE + ACETAMINOPHEN [Concomitant]
  3. LYRICA [Concomitant]
  4. BACLOFEN [Concomitant]
  5. TYLENOL W/ CODEINE [Concomitant]
  6. BOTOX [Concomitant]
  7. SULFAMETHOXAZOLE AND TRIMETHOPRIM DOUBLE STRENGTH [Concomitant]
  8. ADDERALL 5 [Concomitant]
  9. METOCLOPRAMIDE [Suspect]
     Indication: GASTROOESOPHAGEAL REFLUX DISEASE
     Dates: start: 19920101, end: 20010601
  10. DIAZEPAM [Concomitant]
  11. OXYCODONE HCL [Concomitant]
  12. BENADRYL [Concomitant]
  13. NAPROXEN [Concomitant]
  14. COLACE [Concomitant]
  15. FENTANYL [Concomitant]
  16. DICLOFENAC [Concomitant]

REACTIONS (47)
  - MOVEMENT DISORDER [None]
  - AMNESIA [None]
  - MASS [None]
  - MIGRAINE [None]
  - EXTRAPYRAMIDAL DISORDER [None]
  - ATTENTION DEFICIT/HYPERACTIVITY DISORDER [None]
  - PAIN IN EXTREMITY [None]
  - CAESAREAN SECTION [None]
  - ECONOMIC PROBLEM [None]
  - MYALGIA [None]
  - DYSTONIA [None]
  - MUSCULOSKELETAL STIFFNESS [None]
  - DIARRHOEA [None]
  - VITAMIN D DEFICIENCY [None]
  - FOLLICULITIS [None]
  - SOFT TISSUE DISORDER [None]
  - GASTROOESOPHAGEAL REFLUX DISEASE [None]
  - DYSKINESIA [None]
  - RASH PAPULAR [None]
  - MENSTRUAL DISORDER [None]
  - SKIN LESION [None]
  - PREGNANCY [None]
  - TREMOR [None]
  - MUSCLE SPASMS [None]
  - PARAESTHESIA [None]
  - HYPOKALAEMIA [None]
  - TORTICOLLIS [None]
  - HYPOTHYROIDISM [None]
  - TINNITUS [None]
  - NECK PAIN [None]
  - FATIGUE [None]
  - TEARFULNESS [None]
  - HYPERLIPIDAEMIA [None]
  - INSOMNIA [None]
  - HYPOAESTHESIA [None]
  - DIPLOPIA [None]
  - ARTHRALGIA [None]
  - RASH PUSTULAR [None]
  - BACK PAIN [None]
  - HEADACHE [None]
  - VISION BLURRED [None]
  - ANXIETY [None]
  - JOINT INJURY [None]
  - EXOSTOSIS [None]
  - SCAB [None]
  - HEAD INJURY [None]
  - DISCOMFORT [None]
